FAERS Safety Report 7888444-7 (Version None)
Quarter: 2011Q4

REPORT INFORMATION
  Report Type: 
  Country: None (occurrence: None)
  Receive Date: 20111103
  Receipt Date: 20111026
  Transmission Date: 20120403
  Serious: Yes (Death, Life-Threatening, Hospitalization, Disabling)
  Sender: FDA-Public Use
  Company Number: DE-CELGENEUS-062-21880-11092969

PATIENT
  Age: 59 Year
  Sex: Male
  Weight: 71 kg

DRUGS (12)
  1. DEXAMETHASONE [Suspect]
     Dosage: 40 MILLIGRAM
     Route: 065
     Dates: start: 20110729, end: 20110805
  2. AVELOX [Concomitant]
     Indication: PNEUMONIA
     Dosage: 400 MILLIGRAM
     Route: 048
     Dates: start: 20110812, end: 20110826
  3. DEXAMETHASONE [Suspect]
     Route: 065
     Dates: start: 20110923
  4. REVLIMID [Suspect]
     Indication: MULTIPLE MYELOMA
     Dosage: 25 MILLIGRAM
     Route: 048
     Dates: start: 20110701, end: 20110721
  5. DEXAMETHASONE [Suspect]
     Indication: MULTIPLE MYELOMA
     Dosage: 40 MILLIGRAM
     Route: 065
     Dates: start: 20110701, end: 20110722
  6. REVLIMID [Suspect]
     Dosage: 25 MILLIGRAM
     Route: 048
     Dates: start: 20110729, end: 20110811
  7. PANTOPRAZOLE SODIUM [Concomitant]
     Indication: DRUG THERAPY
     Dosage: 40 MILLIGRAM
     Route: 048
     Dates: start: 20110701, end: 20110921
  8. VALTREX [Concomitant]
     Indication: ANTIVIRAL PROPHYLAXIS
     Dosage: 1000 MILLIGRAM
     Route: 048
     Dates: start: 20110701, end: 20111005
  9. REVLIMID [Suspect]
     Dosage: 25 MILLIGRAM
     Route: 048
     Dates: start: 20110826, end: 20110908
  10. AVELOX [Concomitant]
     Dosage: 400 MILLIGRAM
     Route: 048
     Dates: start: 20110909, end: 20110909
  11. AVELOX [Concomitant]
     Dosage: 400 MILLIGRAM
     Route: 048
     Dates: start: 20110910, end: 20111001
  12. ASPIRIN [Concomitant]
     Indication: PROPHYLAXIS
     Dosage: 100 MILLIGRAM
     Route: 048
     Dates: start: 20110701, end: 20110921

REACTIONS (4)
  - CEREBRAL HAEMORRHAGE [None]
  - MULTIPLE MYELOMA [None]
  - ACUTE MYOCARDIAL INFARCTION [None]
  - PNEUMONIA [None]
